FAERS Safety Report 5477014-6 (Version None)
Quarter: 2007Q4

REPORT INFORMATION
  Report Type: 
  Country: None (occurrence: None)
  Receive Date: 20071002
  Receipt Date: 20071002
  Transmission Date: 20080405
  Serious: No
  Sender: FDA-Public Use
  Company Number: None

PATIENT
  Age: 59 Year
  Sex: Male
  Weight: 95.2554 kg

DRUGS (2)
  1. CIPROFLOXACIN HCL [Suspect]
     Indication: DIVERTICULITIS
     Dosage: 1 TABLET TWICE A DAY PO
     Route: 048
     Dates: start: 20061208, end: 20061221
  2. CIPROFLOXACIN HCL [Suspect]
     Indication: DIVERTICULITIS
     Dosage: 1 TABLET TWICE A DAY PO
     Route: 048
     Dates: start: 20070120, end: 20070205

REACTIONS (32)
  - ABDOMINAL DISCOMFORT [None]
  - ABNORMAL FAECES [None]
  - ANORECTAL DISORDER [None]
  - ANXIETY [None]
  - ARTHRALGIA [None]
  - ATROPHY [None]
  - BACK PAIN [None]
  - BONE PAIN [None]
  - CHILLS [None]
  - CONSTIPATION [None]
  - DEPRESSION [None]
  - DIARRHOEA [None]
  - DISCOMFORT [None]
  - DISEASE RECURRENCE [None]
  - DIVERTICULITIS [None]
  - DYSURIA [None]
  - GASTROINTESTINAL PAIN [None]
  - HEADACHE [None]
  - INSOMNIA [None]
  - MUSCULOSKELETAL DISCOMFORT [None]
  - MUSCULOSKELETAL PAIN [None]
  - NEURALGIA [None]
  - PAIN [None]
  - PAIN IN EXTREMITY [None]
  - PARAESTHESIA [None]
  - PELVIC PAIN [None]
  - PERIPHERAL COLDNESS [None]
  - SENSATION OF HEAVINESS [None]
  - SLEEP DISORDER [None]
  - TINNITUS [None]
  - TREMOR [None]
  - WEIGHT DECREASED [None]
